FAERS Safety Report 22989009 (Version 2)
Quarter: 2023Q4

REPORT INFORMATION
  Report Type: Spontaneous
  Country: KR (occurrence: KR)
  Receive Date: 20230927
  Receipt Date: 20231215
  Transmission Date: 20240110
  Serious: Yes (Other)
  Sender: FDA-Public Use
  Company Number: KR-VALIDUS PHARMACEUTICALS LLC-KR-VDP-2023-016371

PATIENT

DRUGS (4)
  1. LASIX [Suspect]
     Active Substance: FUROSEMIDE
     Indication: Nephritic syndrome
     Dosage: 40 MG, QD
     Route: 048
     Dates: start: 20181106, end: 20181106
  2. LASIX [Suspect]
     Active Substance: FUROSEMIDE
     Indication: Glomerulonephritis
  3. LASIX [Suspect]
     Active Substance: FUROSEMIDE
     Indication: Nephritic syndrome
     Dosage: 20 MG, QD
     Route: 030
     Dates: start: 20181107, end: 20181108
  4. LASIX [Suspect]
     Active Substance: FUROSEMIDE
     Indication: Glomerulonephritis

REACTIONS (2)
  - Neuropathy peripheral [Recovered/Resolved]
  - Product use in unapproved indication [Unknown]

NARRATIVE: CASE EVENT DATE: 20181106
